FAERS Safety Report 6542619-8 (Version None)
Quarter: 2010Q1

REPORT INFORMATION
  Report Type: 
  Country: None (occurrence: None)
  Receive Date: 20100119
  Receipt Date: 20100106
  Transmission Date: 20100710
  Serious: Yes (Hospitalization)
  Sender: FDA-Public Use
  Company Number: US-SANOFI-AVENTIS-F03200900072

PATIENT
  Age: 69 Year
  Sex: Female
  Weight: 49.4 kg

DRUGS (22)
  1. OXALIPLATIN [Suspect]
     Indication: COLON CANCER
     Dosage: DAY 1 OF CYCLE EVERY 14 DAYS
     Route: 041
     Dates: start: 20080312, end: 20080312
  2. OXALIPLATIN [Suspect]
     Dosage: DAY 1 OF CYCLE EVERY 14 DAYS
     Route: 041
     Dates: start: 20080301, end: 20080301
  3. INVESTIGATIONAL DRUG [Suspect]
     Indication: COLON CANCER
     Dosage: UNIT DOSE: 5 MG
     Route: 048
     Dates: start: 20080312, end: 20080401
  4. FLUOROURACIL [Suspect]
     Indication: COLON CANCER
     Dosage: 400MG/M2 IV BOLUS ON DAY 1 EVERY 14 DAYS,  PLUS IV CONTINUOUS INFUSION 2500MG/M2 ON DAYS 1-2 Q14DAYS
     Route: 040
     Dates: start: 20080301, end: 20080301
  5. FLUOROURACIL [Suspect]
     Dosage: 400MG/M2 IV BOLUS ON DAY 1 EVERY 14 DAYS,  PLUS IV CONTINUOUS INFUSION 2500MG/M2 ON DAYS 1-2 Q14DAYS
     Route: 040
     Dates: start: 20080312, end: 20080312
  6. FLUOROURACIL [Suspect]
     Dosage: IV CONTINUOUS INFUSION 2500MG/M2 ON DAYS 1-2 Q14DAYS
     Route: 041
     Dates: start: 20080301, end: 20080301
  7. FLUOROURACIL [Suspect]
     Dosage: IV CONTINUOUS INFUSION 2500MG/M2 ON DAYS 1-2 Q14DAYS
     Route: 041
     Dates: start: 20080301, end: 20080301
  8. LEUCOVORIN CALCIUM [Suspect]
     Indication: COLON CANCER
     Route: 042
     Dates: start: 20080301, end: 20080301
  9. LEUCOVORIN CALCIUM [Suspect]
     Route: 041
     Dates: start: 20080312, end: 20080312
  10. MORPHINE [Concomitant]
     Dates: start: 20080407, end: 20080414
  11. LISINOPRIL [Concomitant]
     Dates: start: 20031201
  12. CLOPIDOGREL [Concomitant]
     Dates: start: 20070718, end: 20080407
  13. PREMARIN [Concomitant]
     Dates: start: 19720101
  14. ALEVE [Concomitant]
     Dates: start: 20060101
  15. PEPCID [Concomitant]
     Dates: start: 20070718
  16. LASIX [Concomitant]
     Dates: start: 20080312
  17. ALDACTONE [Concomitant]
     Dates: start: 20080312
  18. HYDROCODONE BITARTRATE + ACETAMINOPHEN [Concomitant]
     Dates: start: 20080310
  19. DURAGESIC-100 [Concomitant]
     Dates: start: 20080311
  20. POTASSIUM CHLORIDE [Concomitant]
     Dates: start: 20080311
  21. NEFAZODONE HCL [Concomitant]
     Dates: start: 20060622
  22. NORVASC [Concomitant]
     Dates: start: 20080326

REACTIONS (3)
  - MALNUTRITION [None]
  - MENTAL STATUS CHANGES [None]
  - STOMATITIS [None]
